FAERS Safety Report 7217598-0 (Version None)
Quarter: 2011Q1

REPORT INFORMATION
  Report Type: 
  Country: None (occurrence: None)
  Receive Date: 20110110
  Receipt Date: 20101231
  Transmission Date: 20110831
  Serious: Yes (Death)
  Sender: FDA-Public Use
  Company Number: US-PFIZER INC-2011002814

PATIENT
  Age: 48 Year
  Sex: Male

DRUGS (3)
  1. SILDENAFIL CITRATE [Suspect]
  2. COLCHICINE [Suspect]
  3. ETODOLAC [Suspect]

REACTIONS (1)
  - COMPLETED SUICIDE [None]
